FAERS Safety Report 9437309 (Version 1)
Quarter: 2013Q3

REPORT INFORMATION
  Report Type: Spontaneous
  Country: GB (occurrence: GB)
  Receive Date: 20130802
  Receipt Date: 20130802
  Transmission Date: 20140515
  Serious: Yes (Other)
  Sender: FDA-Public Use
  Company Number: PHHY2013GB078795

PATIENT
  Age: 64 Year
  Sex: Female

DRUGS (3)
  1. CIPROFLOXACIN [Suspect]
     Indication: KIDNEY INFECTION
     Dosage: 250 MG, QID
  2. HYDROCORTISONE [Concomitant]
  3. FLUDROCORTISONE [Concomitant]

REACTIONS (8)
  - Blood disorder [Not Recovered/Not Resolved]
  - Renal impairment [Recovering/Resolving]
  - Dysgeusia [Recovering/Resolving]
  - Ulcer [Not Recovered/Not Resolved]
  - Contusion [Unknown]
  - Abdominal pain upper [Not Recovered/Not Resolved]
  - Tinnitus [Not Recovered/Not Resolved]
  - Myalgia [Not Recovered/Not Resolved]
